FAERS Safety Report 18756488 (Version 1)
Quarter: 2021Q1

REPORT INFORMATION
  Report Type: Spontaneous
  Country: DE (occurrence: DE)
  Receive Date: 20210119
  Receipt Date: 20210119
  Transmission Date: 20210419
  Serious: Yes (Hospitalization, Other)
  Sender: FDA-Public Use
  Company Number: DE-PFIZER INC-2021028242

PATIENT
  Age: 41 Year
  Sex: Female
  Weight: 63 kg

DRUGS (3)
  1. L?THYROXINE [LEVOTHYROXINE] [Concomitant]
     Active Substance: LEVOTHYROXINE
     Dosage: 112 UG, DAILY
  2. IBUPROFEN. [Suspect]
     Active Substance: IBUPROFEN
     Indication: ARTHRITIS
  3. WOBENZYM [BROMELAINS;CHYMOTRYPSIN;DIASTASE;LIPASE;PANCREATIN;PAPAIN;TR [Suspect]
     Active Substance: BROMELAINS\CHYMOTRYPSIN\DIASTASE\LIPASE\PANCRELIPASE\PAPAIN\TRYPSIN
     Indication: ARTHRITIS
     Dosage: 12 DF, DAILY
     Dates: start: 20201128, end: 20201203

REACTIONS (1)
  - Angioedema [Recovered/Resolved]

NARRATIVE: CASE EVENT DATE: 20201203
